FAERS Safety Report 6452446-8 (Version None)
Quarter: 2009Q4

REPORT INFORMATION
  Report Type: 
  Country: None (occurrence: None)
  Receive Date: 20091123
  Receipt Date: 20091105
  Transmission Date: 20100525
  Serious: Yes (Disabling)
  Sender: FDA-Public Use
  Company Number: DE-GENENTECH-292119

PATIENT
  Sex: Female
  Weight: 62 kg

DRUGS (11)
  1. RITUXIMAB [Suspect]
     Indication: LYMPHOMA
     Route: 042
     Dates: start: 20051115, end: 20060306
  2. CYCLOPHOSPHAMIDE [Suspect]
     Indication: DRUG USE FOR UNKNOWN INDICATION
     Dosage: UNK
     Route: 065
     Dates: start: 20060101
  3. DOXORUBICIN HCL [Suspect]
     Indication: DRUG USE FOR UNKNOWN INDICATION
     Dosage: UNK
     Route: 065
     Dates: start: 20060101
  4. PREDNISONE TAB [Suspect]
     Indication: DRUG USE FOR UNKNOWN INDICATION
     Dosage: UNK
     Route: 065
     Dates: start: 20060101
  5. VINCRISTINE [Suspect]
     Indication: DRUG USE FOR UNKNOWN INDICATION
     Dosage: UNK
     Route: 065
     Dates: start: 20060101
  6. BENDAMUSTINE [Suspect]
     Route: 042
     Dates: start: 20051117, end: 20060308
  7. CIPROFLOXACIN HCL [Concomitant]
     Indication: INFECTION
     Route: 048
     Dates: start: 20051110, end: 20051119
  8. COTRIM [Concomitant]
     Indication: URINARY TRACT INFECTION
     Dosage: 860 MG, QD
     Route: 048
     Dates: start: 20051129, end: 20051201
  9. ALOXI [Concomitant]
     Indication: PROPHYLAXIS OF NAUSEA AND VOMITING
     Dosage: APPLICATION FOR 3 DAYS ON DAY 1-3
     Route: 042
     Dates: start: 20051115, end: 20060308
  10. CLEMASTINE FUMARATE [Concomitant]
     Route: 042
     Dates: start: 20051115, end: 20060306
  11. CIMETIDIN [Concomitant]
     Route: 042
     Dates: start: 20051115, end: 20060306

REACTIONS (1)
  - OSTEOARTHRITIS [None]
